FAERS Safety Report 20600523 (Version 1)
Quarter: 2022Q1

REPORT INFORMATION
  Report Type: Spontaneous
  Country: AR (occurrence: AR)
  Receive Date: 20220316
  Receipt Date: 20220316
  Transmission Date: 20220423
  Serious: Yes (Hospitalization)
  Sender: FDA-Public Use
  Company Number: AR-AUROBINDO-AUR-APL-2022-008354

PATIENT
  Age: 80 Year
  Sex: Male

DRUGS (1)
  1. BELEODAQ [Suspect]
     Active Substance: BELINOSTAT
     Indication: T-cell lymphoma refractory
     Dosage: 1000 MILLIGRAM, DAILY (1 INTERVAL AND 2 VIALS/DAY DURING 5 DAYS)
     Route: 065
     Dates: start: 20220225

REACTIONS (1)
  - COVID-19 [Unknown]

NARRATIVE: CASE EVENT DATE: 20220301
